FAERS Safety Report 5407585-7 (Version None)
Quarter: 2007Q3

REPORT INFORMATION
  Report Type: 
  Country: None (occurrence: None)
  Receive Date: 20070807
  Receipt Date: 20070731
  Transmission Date: 20080115
  Serious: Yes (Hospitalization)
  Sender: FDA-Public Use
  Company Number: US-BOEHRINGER INGELHEIM PHARMACEUTICALS, INC.-2007-BP-18362BP

PATIENT
  Age: 49 Year
  Sex: Female

DRUGS (2)
  1. MOBIC [Suspect]
     Indication: ARTHRALGIA
     Route: 048
     Dates: start: 20070112, end: 20070619
  2. UNKNOWN STUDY DRUG [Suspect]
     Indication: ARTHRALGIA
     Dates: start: 20061228, end: 20070709

REACTIONS (4)
  - BLADDER PROLAPSE [None]
  - HAEMATOCRIT DECREASED [None]
  - HAEMORRHAGE [None]
  - POST PROCEDURAL HAEMORRHAGE [None]
